FAERS Safety Report 8336715-2 (Version None)
Quarter: 2012Q2

REPORT INFORMATION
  Report Type: 
  Country: None (occurrence: None)
  Receive Date: 20120504
  Receipt Date: 20120423
  Transmission Date: 20120825
  Serious: Yes (Hospitalization)
  Sender: FDA-Public Use
  Company Number: JP-JNJFOC-20120406048

PATIENT
  Sex: Male
  Weight: 55 kg

DRUGS (12)
  1. REMICADE [Suspect]
     Route: 042
  2. REMICADE [Suspect]
     Route: 042
     Dates: start: 20120326
  3. CINAL [Concomitant]
     Route: 048
     Dates: start: 20100904, end: 20120409
  4. PENTASA [Concomitant]
     Indication: CROHN'S DISEASE
     Dosage: START DATE PRIOR TO FEB-2009
     Route: 048
     Dates: start: 20090101
  5. REMICADE [Suspect]
     Indication: CROHN'S DISEASE
     Route: 042
     Dates: start: 20101001, end: 20101001
  6. OLOPATADINE HCL [Concomitant]
     Indication: URTICARIA
     Route: 048
     Dates: start: 20110728, end: 20120409
  7. MIYA BM [Concomitant]
     Indication: CROHN'S DISEASE
     Dosage: START DATE PRIOR TO FEB-2009
     Route: 048
     Dates: start: 20090101
  8. LANSOPRAZOLE [Concomitant]
     Dosage: START DATE PRIOR TO FEB-2009
     Route: 048
     Dates: start: 20090101, end: 20120307
  9. IMURAN [Concomitant]
     Indication: CROHN'S DISEASE
     Dosage: START DATE PRIOR TO FEB-2009
     Route: 048
     Dates: start: 20090101, end: 20100721
  10. REMICADE [Suspect]
     Route: 042
     Dates: start: 20120409
  11. CYANOCOBALAMIN [Concomitant]
     Dosage: 3 TAB
     Route: 048
     Dates: start: 20110120, end: 20120409
  12. RABEPRAZOLE SODIUM [Concomitant]
     Route: 048
     Dates: start: 20120308

REACTIONS (4)
  - TREMOR [None]
  - ANAPHYLACTIC REACTION [None]
  - INFUSION RELATED REACTION [None]
  - CONVULSION [None]
